FAERS Safety Report 10648507 (Version 1)
Quarter: 2014Q4

REPORT INFORMATION
  Report Type: Spontaneous
  Country: US (occurrence: None)
  Receive Date: 20141211
  Receipt Date: 20141211
  Transmission Date: 20150529
  Serious: Yes (Death, Hospitalization)
  Sender: FDA-Public Use
  Company Number: None

PATIENT
  Age: 81 Year
  Sex: Female
  Weight: 63.5 kg

DRUGS (1)
  1. XARELTO [Suspect]
     Active Substance: RIVAROXABAN
     Indication: THROMBOSIS
     Dosage: I PILL
     Route: 048
     Dates: start: 20140323, end: 20141009

REACTIONS (7)
  - Neoplasm malignant [None]
  - Constipation [None]
  - Malignant peritoneal neoplasm [None]
  - Abdominal pain upper [None]
  - Pneumonia [None]
  - Aspiration [None]
  - Vomiting [None]

NARRATIVE: CASE EVENT DATE: 20141121
